FAERS Safety Report 8874247 (Version 2)
Quarter: 2012Q4

REPORT INFORMATION
  Report Type: Report from Study
  Country: AT (occurrence: AT)
  Receive Date: 20121030
  Receipt Date: 20121203
  Transmission Date: 20130627
  Serious: Yes (Hospitalization, Other)
  Sender: FDA-Public Use
  Company Number: AT-CELGENEUS-009-C5013-12071188

PATIENT
  Age: 75 Year
  Sex: Male
  Weight: 66 kg

DRUGS (8)
  1. CC-5013 [Suspect]
     Indication: MULTIPLE MYELOMA
     Dosage: 10 Milligram
     Route: 048
     Dates: start: 20100927
  2. CC-5013 [Suspect]
     Dosage: 10 Milligram
     Route: 048
     Dates: start: 20120606
  3. CC-5013 [Suspect]
     Dosage: 10 Milligram
     Route: 048
     Dates: start: 20120912, end: 20120925
  4. DEXAMETHASONE [Suspect]
     Indication: MULTIPLE MYELOMA
     Dosage: 40 Milligram
     Route: 065
     Dates: start: 20100927
  5. DEXAMETHASONE [Suspect]
     Dosage: 40 Milligram
     Route: 065
     Dates: start: 20120606
  6. DEXAMETHASONE [Suspect]
     Route: 065
     Dates: start: 20120912, end: 20120925
  7. THROMBO ASS [Concomitant]
     Indication: CARDIOVASCULAR EVENT PROPHYLAXIS
     Dosage: 100 Milligram
     Route: 048
     Dates: start: 20101216, end: 20120315
  8. THROMBO ASS [Concomitant]
     Indication: THROMBOSIS PROPHYLAXIS
     Route: 048
     Dates: start: 20120316

REACTIONS (3)
  - Skin ulcer [Recovered/Resolved]
  - Peripheral arterial occlusive disease [Recovered/Resolved]
  - Psychosomatic disease [Not Recovered/Not Resolved]
